FAERS Safety Report 5688196-5 (Version None)
Quarter: 2008Q1

REPORT INFORMATION
  Report Type: 
  Country: None (occurrence: None)
  Receive Date: 20080327
  Receipt Date: 20080318
  Transmission Date: 20080703
  Serious: Yes (Other)
  Sender: FDA-Public Use
  Company Number: 18686

PATIENT
  Age: 5 Year
  Sex: Male

DRUGS (3)
  1. CARBOPLATIN [Suspect]
     Indication: NEPHROBLASTOMA
     Dosage: 1200 MG/M2
  2. ETOPOSIDE [Suspect]
     Indication: NEPHROBLASTOMA
     Dosage: 800 MG/M2
  3. MELPHALAN [Suspect]
     Indication: NEPHROBLASTOMA
     Dosage: 180 MG/M2

REACTIONS (5)
  - CRYPTOGENIC ORGANISING PNEUMONIA [None]
  - DRUG TOXICITY [None]
  - IMMUNE SYSTEM DISORDER [None]
  - INFECTION [None]
  - LUNG NEOPLASM [None]
